FAERS Safety Report 18898148 (Version 1)
Quarter: 2021Q1

REPORT INFORMATION
  Report Type: Spontaneous
  Country: US (occurrence: US)
  Receive Date: 20210213
  Receipt Date: 20210213
  Transmission Date: 20210420
  Serious: Yes (Life-Threatening, Other)
  Sender: FDA-Public Use
  Company Number: None

PATIENT
  Age: 33 Year
  Sex: Female
  Weight: 78.75 kg

DRUGS (3)
  1. GOODBYE STRESS KEEP CALM AND STAY ALERT [DIETARY SUPPLEMENT] [Suspect]
     Active Substance: DIETARY SUPPLEMENT
     Indication: ANXIETY
     Route: 048
     Dates: start: 20210204, end: 20210204
  2. FLUOXETINE [Suspect]
     Active Substance: FLUOXETINE HYDROCHLORIDE
  3. PASSION FLOWER TEA [Concomitant]

REACTIONS (4)
  - Depression [None]
  - Suicidal ideation [None]
  - Crying [None]
  - Educational problem [None]

NARRATIVE: CASE EVENT DATE: 20210205
